FAERS Safety Report 10605829 (Version 2)
Quarter: 2014Q4

REPORT INFORMATION
  Report Type: Spontaneous
  Country: TR (occurrence: TR)
  Receive Date: 20141125
  Receipt Date: 20141225
  Transmission Date: 20150529
  Serious: Yes (Death, Hospitalization)
  Sender: FDA-Public Use
  Company Number: TR-AMGEN-TURSP2014090920

PATIENT
  Age: 56 Year
  Sex: Female

DRUGS (1)
  1. ENBREL [Suspect]
     Active Substance: ETANERCEPT
     Indication: RHEUMATOID ARTHRITIS
     Dosage: 25 MG, WEEKLY
     Route: 058
     Dates: start: 201405, end: 201408

REACTIONS (3)
  - Tuberculosis [Fatal]
  - Pulmonary oedema [Fatal]
  - Pain [Unknown]

NARRATIVE: CASE EVENT DATE: 201408
